FAERS Safety Report 18184517 (Version 1)
Quarter: 2020Q3

REPORT INFORMATION
  Report Type: Spontaneous
  Country: US (occurrence: US)
  Receive Date: 20200824
  Receipt Date: 20200824
  Transmission Date: 20201103
  Serious: No
  Sender: FDA-Public Use
  Company Number: US-LUPIN PHARMACEUTICALS INC.-2020-00852

PATIENT
  Age: 54 Year
  Sex: Male

DRUGS (2)
  1. MORPHINE [Suspect]
     Active Substance: MORPHINE
     Dosage: UNK (HIGHER DOSE)
     Route: 042
  2. MORPHINE [Suspect]
     Active Substance: MORPHINE
     Indication: OEDEMATOUS PANCREATITIS
     Dosage: UNK (LOW DOSES)
     Route: 042

REACTIONS (2)
  - Abdominal pain upper [Recovering/Resolving]
  - Condition aggravated [Recovering/Resolving]
